FAERS Safety Report 4613516-X (Version None)
Quarter: 2005Q1

REPORT INFORMATION
  Report Type: 
  Country: None (occurrence: None)
  Receive Date: 20050316
  Receipt Date: 20050303
  Transmission Date: 20050727
  Serious: Yes (Death, Life-Threatening, Hospitalization, Other)
  Sender: FDA-Public Use
  Company Number: 2004054460

PATIENT
  Age: 24 Month
  Sex: Female
  Weight: 13 kg

DRUGS (7)
  1. ZITHROMAX [Suspect]
     Indication: OTITIS MEDIA
     Dosage: 200 MG (200 MG, 1 IN 1 D), ORAL
     Route: 048
     Dates: start: 20031009, end: 20031209
  2. AMOXICILLIN TRIHYDRATE [Concomitant]
  3. CIMENHYDRINATE (DIMENHYDRINATE) [Concomitant]
  4. IBUPROFEN [Concomitant]
  5. METOCLOPRAMIDE HYDROCHLORIDE [Concomitant]
  6. ALL OTHER THERAPEUTIC PRODUCTS (ALL OTHER THERAPEUTIC PRODUCTS) [Concomitant]
  7. ACETAMINOPHEN [Concomitant]

REACTIONS (26)
  - AGRANULOCYTOSIS [None]
  - ASCITES [None]
  - BLOOD CREATININE INCREASED [None]
  - BLOOD IMMUNOGLOBULIN G [None]
  - BLOOD PRESSURE INCREASED [None]
  - BRAIN DEATH [None]
  - BRAIN OEDEMA [None]
  - BRAIN STEM SYNDROME [None]
  - COAGULOPATHY [None]
  - DEHYDRATION [None]
  - DRUG LEVEL DECREASED [None]
  - ENANTHEMA [None]
  - HAEMODIALYSIS [None]
  - HEPATIC ENCEPHALOPATHY [None]
  - HEPATIC FAILURE [None]
  - HEPATIC NECROSIS [None]
  - HEPATIC STEATOSIS [None]
  - HEPATITIS VIRAL [None]
  - HEPATORENAL SYNDROME [None]
  - HUMAN HERPES VIRUS 6 SEROLOGY POSITIVE [None]
  - MEAN ARTERIAL PRESSURE DECREASED [None]
  - NEUTROPENIA [None]
  - PROTHROMBIN TIME PROLONGED [None]
  - RASH [None]
  - RESTLESSNESS [None]
  - SOMNOLENCE [None]
